FAERS Safety Report 24857528 (Version 2)
Quarter: 2025Q1

REPORT INFORMATION
  Report Type: Spontaneous
  Country: US (occurrence: US)
  Receive Date: 20250117
  Receipt Date: 20250220
  Transmission Date: 20250409
  Serious: No
  Sender: PFIZER
  Company Number: US-PFIZER INC-202500009634

PATIENT
  Age: 54 Year
  Sex: Male

DRUGS (5)
  1. BRENTUXIMAB VEDOTIN [Suspect]
     Active Substance: BRENTUXIMAB VEDOTIN
  2. DOXORUBICIN HYDROCHLORIDE [Suspect]
     Active Substance: DOXORUBICIN HYDROCHLORIDE
  3. PEGFILGRASTIM [Suspect]
     Active Substance: PEGFILGRASTIM
  4. CYCLOPHOSPHAMIDE [Suspect]
     Active Substance: CYCLOPHOSPHAMIDE
  5. PREDNISONE [Suspect]
     Active Substance: PREDNISONE

REACTIONS (5)
  - Lacrimation increased [Unknown]
  - Eye irritation [Unknown]
  - Rhinorrhoea [Unknown]
  - Weight increased [Unknown]
  - Tooth fracture [Unknown]
